FAERS Safety Report 14199958 (Version 1)
Quarter: 2017Q4

REPORT INFORMATION
  Report Type: Spontaneous
  Country: US (occurrence: US)
  Receive Date: 20171117
  Receipt Date: 20171117
  Transmission Date: 20180321
  Serious: No
  Sender: FDA-Public Use
  Company Number: US-BAUSCH-BL-2017-018370

PATIENT
  Age: 73 Year
  Sex: Female
  Weight: 63.56 kg

DRUGS (1)
  1. METRONIDAZOLE. [Suspect]
     Active Substance: METRONIDAZOLE
     Indication: CANDIDA INFECTION
     Route: 065
     Dates: start: 20170511, end: 201705

REACTIONS (4)
  - Off label use [Unknown]
  - Rash [Recovered/Resolved]
  - Drug effect incomplete [Unknown]
  - Drug hypersensitivity [Unknown]

NARRATIVE: CASE EVENT DATE: 201705
